FAERS Safety Report 6218355-4 (Version None)
Quarter: 2009Q2

REPORT INFORMATION
  Report Type: 
  Country: None (occurrence: None)
  Receive Date: 20090608
  Receipt Date: 20090601
  Transmission Date: 20091009
  Serious: Yes (Disabling)
  Sender: FDA-Public Use
  Company Number: A0787731A

PATIENT
  Sex: Male

DRUGS (1)
  1. ALTABAX [Suspect]
     Indication: IMPETIGO
     Route: 045
     Dates: start: 20090101, end: 20090101

REACTIONS (3)
  - EPISTAXIS [None]
  - HEADACHE [None]
  - VISUAL IMPAIRMENT [None]
